FAERS Safety Report 24587496 (Version 1)
Quarter: 2024Q4

REPORT INFORMATION
  Report Type: Spontaneous
  Country: CN (occurrence: CN)
  Receive Date: 20241107
  Receipt Date: 20241107
  Transmission Date: 20250115
  Serious: Yes (Life-Threatening, Other)
  Sender: BAUSCH AND LOMB
  Company Number: CN-MLMSERVICE-20241025-PI234485-00117-1

PATIENT
  Age: 21 Year
  Sex: Male

DRUGS (11)
  1. DEXAMETHASONE [Suspect]
     Active Substance: DEXAMETHASONE
     Indication: Central nervous system leukaemia
     Route: 042
     Dates: start: 201808, end: 2018
  2. DEXAMETHASONE [Suspect]
     Active Substance: DEXAMETHASONE
     Dosage: 6 CYCLES, 3-6 TIMES PER CYCLE, TOTALING 23 TIMES
     Route: 037
     Dates: start: 201808, end: 201912
  3. DEXAMETHASONE [Suspect]
     Active Substance: DEXAMETHASONE
     Route: 040
     Dates: start: 201904, end: 2019
  4. EPIRUBICIN [Suspect]
     Active Substance: EPIRUBICIN
     Indication: Central nervous system leukaemia
     Route: 040
     Dates: start: 201808, end: 2018
  5. EPIRUBICIN [Suspect]
     Active Substance: EPIRUBICIN
     Route: 040
     Dates: start: 201904, end: 2019
  6. CYCLOPHOSPHAMIDE [Suspect]
     Active Substance: CYCLOPHOSPHAMIDE
     Indication: Central nervous system leukaemia
     Route: 040
     Dates: start: 201808, end: 2018
  7. CYCLOPHOSPHAMIDE [Suspect]
     Active Substance: CYCLOPHOSPHAMIDE
     Route: 040
     Dates: start: 201904, end: 2019
  8. VINDESINE [Suspect]
     Active Substance: VINDESINE
     Indication: Central nervous system leukaemia
     Route: 040
     Dates: start: 201808, end: 2018
  9. VINDESINE [Suspect]
     Active Substance: VINDESINE
     Route: 040
     Dates: start: 201904, end: 2019
  10. METHOTREXATE [Suspect]
     Active Substance: METHOTREXATE
     Indication: Central nervous system leukaemia
     Dosage: 6 CYCLES, 3-6 TIMES PER CYCLE, TOTALING 23 TIMES
     Route: 037
     Dates: start: 201808, end: 201912
  11. CYTARABINE [Suspect]
     Active Substance: CYTARABINE
     Indication: Central nervous system leukaemia
     Dosage: 6 CYCLES, 3-6 TIMES PER CYCLE, TOTALING 23 TIMES
     Route: 037
     Dates: start: 201808, end: 201912

REACTIONS (4)
  - Myelosuppression [Unknown]
  - Infection [Unknown]
  - Drug intolerance [Unknown]
  - Drug ineffective [Unknown]

NARRATIVE: CASE EVENT DATE: 20180101
